FAERS Safety Report 10149839 (Version 1)
Quarter: 2014Q2

REPORT INFORMATION
  Report Type: Spontaneous
  Country: US (occurrence: None)
  Receive Date: 20140501
  Receipt Date: 20140501
  Transmission Date: 20141212
  Serious: Yes (Hospitalization)
  Sender: FDA-Public Use
  Company Number: None

PATIENT
  Age: 41 Year
  Sex: Female

DRUGS (10)
  1. DEXMEDETOMIDINE [Suspect]
     Indication: SEDATION
     Dosage: CONTINUOUS
     Route: 042
     Dates: start: 20131112, end: 20131113
  2. ACYCLOVIR [Concomitant]
  3. CEFEPIME [Concomitant]
  4. CASPOFUNGIN [Concomitant]
  5. CLONAZEPAM [Concomitant]
  6. CYCLOSPORINE [Concomitant]
  7. HALOPERIDOL [Concomitant]
  8. MAGNESIUM OXIDE [Concomitant]
  9. QUETIAPINE [Concomitant]
  10. RANITIDINE [Concomitant]

REACTIONS (1)
  - Bradycardia [None]
